FAERS Safety Report 12982473 (Version 1)
Quarter: 2016Q4

REPORT INFORMATION
  Report Type: Spontaneous
  Country: US (occurrence: US)
  Receive Date: 20161129
  Receipt Date: 20161129
  Transmission Date: 20170207
  Serious: No
  Sender: FDA-Public Use
  Company Number: US-ELI_LILLY_AND_COMPANY-US201607007564

PATIENT
  Age: 53 Year
  Sex: Female
  Weight: 70 kg

DRUGS (7)
  1. CYMBALTA [Suspect]
     Active Substance: DULOXETINE HYDROCHLORIDE
     Dosage: UNK, UNKNOWN
     Route: 065
     Dates: start: 2006, end: 201109
  2. CYMBALTA [Suspect]
     Active Substance: DULOXETINE HYDROCHLORIDE
     Dosage: 90 MG, QD
     Route: 065
     Dates: start: 20080604, end: 20080614
  3. CYMBALTA [Suspect]
     Active Substance: DULOXETINE HYDROCHLORIDE
     Dosage: 60 MG, QD
     Route: 065
     Dates: end: 20110425
  4. CYMBALTA [Suspect]
     Active Substance: DULOXETINE HYDROCHLORIDE
     Indication: FIBROMYALGIA
     Dosage: UNK, UNKNOWN
     Route: 065
     Dates: start: 2006
  5. CYMBALTA [Suspect]
     Active Substance: DULOXETINE HYDROCHLORIDE
     Dosage: 30 MG, QD
     Route: 065
     Dates: start: 20060823
  6. CYMBALTA [Suspect]
     Active Substance: DULOXETINE HYDROCHLORIDE
     Dosage: 60 MG, QD
     Route: 065
  7. CYMBALTA [Suspect]
     Active Substance: DULOXETINE HYDROCHLORIDE
     Dosage: 120 MG, QD
     Route: 065
     Dates: start: 20080614

REACTIONS (19)
  - Vomiting [Unknown]
  - Nausea [Unknown]
  - Irritability [Unknown]
  - Drug withdrawal syndrome [Unknown]
  - Headache [Unknown]
  - Affect lability [Unknown]
  - Memory impairment [Unknown]
  - Paraesthesia [Unknown]
  - Insomnia [Unknown]
  - Fatigue [Unknown]
  - Agitation [Unknown]
  - Disturbance in attention [Unknown]
  - Hyperhidrosis [Unknown]
  - Dysphoria [Unknown]
  - Anxiety [Unknown]
  - Confusional state [Unknown]
  - Feeling hot [Unknown]
  - Mood altered [Unknown]
  - Breathing-related sleep disorder [Unknown]

NARRATIVE: CASE EVENT DATE: 20070109
